FAERS Safety Report 13580797 (Version 2)
Quarter: 2017Q3

REPORT INFORMATION
  Report Type: Report from Study
  Country: TW (occurrence: TW)
  Receive Date: 20170525
  Receipt Date: 20170713
  Transmission Date: 20171127
  Serious: Yes (Other)
  Sender: FDA-Public Use
  Company Number: TW-PFIZER INC-2017219705

PATIENT
  Sex: Male

DRUGS (5)
  1. OXALIPLATIN. [Suspect]
     Active Substance: OXALIPLATIN
     Indication: OESOPHAGEAL CARCINOMA
     Dosage: 35 MG/M2, CYCLIC, (FOR 2 HOURS) (DAYS 1 AND 2)
     Route: 042
  2. FLUOROURACIL. [Suspect]
     Active Substance: FLUOROURACIL
     Dosage: 400 MG/M2, CYCLIC, (FOR 1 HOUR) (5 DAYS ON WEEKS 1 AND 5)
     Route: 042
  3. FLUOROURACIL. [Suspect]
     Active Substance: FLUOROURACIL
     Indication: OESOPHAGEAL CARCINOMA
     Dosage: 2400 MG/M2, CYCLIC, (CONTINUOUSLY FOR 48 HOURS) (ON DAY 1)
     Route: 042
  4. OXALIPLATIN. [Suspect]
     Active Substance: OXALIPLATIN
     Dosage: 45 MG/M2, CYCLIC, (FOR 2 HOURS) (ON DAY 1 OF RADIATION THERAPY EVERY 14 DAYS)
     Route: 042
  5. CALCIUM FOLINATE [Suspect]
     Active Substance: LEUCOVORIN CALCIUM
     Indication: OESOPHAGEAL CARCINOMA
     Dosage: 200 MG/M2, CYCLIC, (FOR 2 HOURS) (ON DAY 1)
     Route: 042

REACTIONS (1)
  - Pulmonary toxicity [Unknown]
